FAERS Safety Report 13023754 (Version 3)
Quarter: 2018Q1

REPORT INFORMATION
  Report Type: Report from Study
  Country: BR (occurrence: BR)
  Receive Date: 20161213
  Receipt Date: 20180313
  Transmission Date: 20180508
  Serious: Yes (Hospitalization)
  Sender: FDA-Public Use
  Company Number: PHHY2015BR155899

PATIENT
  Age: 20 Year
  Sex: Male
  Weight: 49 kg

DRUGS (3)
  1. EXJADE [Suspect]
     Active Substance: DEFERASIROX
     Indication: SICKLE CELL ANAEMIA
     Dosage: 3 DF, QD (1500 MG, QD)
     Route: 048
  2. HYDREA [Concomitant]
     Active Substance: HYDROXYUREA
     Indication: PRODUCT USED FOR UNKNOWN INDICATION
     Route: 065
  3. FOLIC ACID. [Concomitant]
     Active Substance: FOLIC ACID
     Indication: SICKLE CELL ANAEMIA
     Dosage: 5 MG, QW3
     Route: 048

REACTIONS (12)
  - Ligament sprain [Unknown]
  - Pneumonia [Unknown]
  - Sickle cell anaemia with crisis [Unknown]
  - Swelling [Unknown]
  - Pain [Recovering/Resolving]
  - Malaise [Unknown]
  - Pyrexia [Unknown]
  - Back pain [Unknown]
  - Limb injury [Recovered/Resolved]
  - Pain in extremity [Unknown]
  - Wound [Unknown]
  - Inflammation [Unknown]

NARRATIVE: CASE EVENT DATE: 20180220
